FAERS Safety Report 7129604-2 (Version None)
Quarter: 2010Q4

REPORT INFORMATION
  Report Type: 
  Country: None (occurrence: None)
  Receive Date: 20101130
  Receipt Date: 20101118
  Transmission Date: 20110411
  Serious: Yes (Hospitalization, Other)
  Sender: FDA-Public Use
  Company Number: PHHY2010US69641

PATIENT
  Sex: Female
  Weight: 26 kg

DRUGS (3)
  1. EXJADE [Suspect]
     Dosage: 500 MG, QD
     Route: 048
     Dates: start: 20100501, end: 20100601
  2. FOLIC ACID [Concomitant]
     Indication: RED BLOOD CELL COUNT INCREASED
     Dosage: 1 MG DAILY
     Route: 048
  3. HYDROXYUREA [Concomitant]
     Indication: PROPHYLAXIS
     Dosage: 500 MG DAILY
     Route: 048

REACTIONS (1)
  - STEM CELL TRANSPLANT [None]
